FAERS Safety Report 12650720 (Version 1)
Quarter: 2016Q3

REPORT INFORMATION
  Report Type: Spontaneous
  Country: US (occurrence: US)
  Receive Date: 20160815
  Receipt Date: 20160815
  Transmission Date: 20161109
  Serious: No
  Sender: FDA-Public Use
  Company Number: US-JAZZ-2016-US-004781

PATIENT
  Sex: Female

DRUGS (31)
  1. VITAMIN B12 [Concomitant]
     Active Substance: CYANOCOBALAMIN
  2. RITALIN [Concomitant]
     Active Substance: METHYLPHENIDATE HYDROCHLORIDE
  3. MSM [Concomitant]
     Active Substance: DIMETHYL SULFONE
  4. TRICOR [Concomitant]
     Active Substance: FENOFIBRATE
  5. PROGESTERONE. [Concomitant]
     Active Substance: PROGESTERONE
  6. ESTRONE [Concomitant]
     Active Substance: ESTRONE
  7. FAMOTIDINE. [Concomitant]
     Active Substance: FAMOTIDINE
  8. HORIZANT [Concomitant]
     Active Substance: GABAPENTIN ENACARBIL
  9. DOXEPIN [Concomitant]
     Active Substance: DOXEPIN
  10. LACTULOSE. [Concomitant]
     Active Substance: LACTULOSE
  11. NATURE-THROID [Concomitant]
     Active Substance: THYROID, PORCINE
  12. XANAX [Concomitant]
     Active Substance: ALPRAZOLAM
  13. CALCIUM CARBONATE. [Concomitant]
     Active Substance: CALCIUM CARBONATE
  14. TESTOSTERONE. [Concomitant]
     Active Substance: TESTOSTERONE
  15. XYREM [Suspect]
     Active Substance: SODIUM OXYBATE
     Indication: NARCOLEPSY
     Dosage: 3 G, BID
     Route: 048
     Dates: start: 201407, end: 201408
  16. XYREM [Suspect]
     Active Substance: SODIUM OXYBATE
     Indication: CATAPLEXY
     Dosage: DOSE ADJUSTMENTS
     Route: 048
  17. VYVANSE [Suspect]
     Active Substance: LISDEXAMFETAMINE DIMESYLATE
     Indication: PRODUCT USED FOR UNKNOWN INDICATION
     Dosage: UNK
  18. IBUPROFEN. [Concomitant]
     Active Substance: IBUPROFEN
  19. VITAMIN D [Concomitant]
     Active Substance: CHOLECALCIFEROL
  20. ADDERALL [Suspect]
     Active Substance: AMPHETAMINE ASPARTATE\AMPHETAMINE SULFATE\DEXTROAMPHETAMINE SACCHARATE\DEXTROAMPHETAMINE SULFATE
     Indication: PRODUCT USED FOR UNKNOWN INDICATION
     Dosage: UNK
     Dates: start: 20140825, end: 20160101
  21. ACEBUTOLOL HCL [Concomitant]
     Active Substance: ACEBUTOLOL
  22. DALMANE [Concomitant]
     Active Substance: FLURAZEPAM HYDROCHLORIDE
  23. ASPIRIN. [Concomitant]
     Active Substance: ASPIRIN
  24. VOLTAREN [Concomitant]
     Active Substance: DICLOFENAC SODIUM
  25. XYREM [Suspect]
     Active Substance: SODIUM OXYBATE
     Dosage: 5.25 G, BID
     Route: 048
     Dates: start: 201506
  26. LAMICTAL [Concomitant]
     Active Substance: LAMOTRIGINE
  27. MOBIC [Concomitant]
     Active Substance: MELOXICAM
  28. SYNTHROID [Concomitant]
     Active Substance: LEVOTHYROXINE SODIUM
  29. LOSARTAN POTASSIUM. [Concomitant]
     Active Substance: LOSARTAN POTASSIUM
  30. SAVELLA [Concomitant]
     Active Substance: MILNACIPRAN HYDROCHLORIDE
  31. NALTREXONE HCL [Concomitant]
     Active Substance: NALTREXONE HYDROCHLORIDE

REACTIONS (3)
  - Feeling jittery [Unknown]
  - Wrong technique in product usage process [Unknown]
  - Weight increased [Unknown]
